FAERS Safety Report 9331235 (Version 1)
Quarter: 2013Q2

REPORT INFORMATION
  Report Type: Report from Study
  Country: IL (occurrence: IL)
  Receive Date: 20130605
  Receipt Date: 20130605
  Transmission Date: 20140414
  Serious: Yes (Hospitalization)
  Sender: FDA-Public Use
  Company Number: IL-ASTRAZENECA-2012SE93819

PATIENT
  Age: 28932 Day
  Sex: Male

DRUGS (17)
  1. VANDETANIB [Suspect]
     Indication: MEDULLARY THYROID CANCER
     Dosage: DAILY
     Route: 048
     Dates: start: 20120815, end: 20120919
  2. VANDETANIB [Suspect]
     Indication: MEDULLARY THYROID CANCER
     Dosage: DAILY
     Route: 048
     Dates: start: 20121004, end: 20121110
  3. VANDETANIB [Suspect]
     Indication: MEDULLARY THYROID CANCER
     Dosage: DAILY
     Route: 048
     Dates: start: 20121112, end: 20121202
  4. VANDETANIB [Suspect]
     Indication: MEDULLARY THYROID CANCER
     Dosage: DAILY
     Route: 048
     Dates: start: 20121203, end: 20121209
  5. VANDETANIB [Suspect]
     Indication: MEDULLARY THYROID CANCER
     Dosage: DAILY
     Route: 048
     Dates: start: 20130107, end: 20130303
  6. VANDETANIB [Suspect]
     Indication: MEDULLARY THYROID CANCER
     Dosage: DAILY
     Route: 048
     Dates: start: 20130326
  7. PRAVALIP [Concomitant]
     Indication: HYPERLIPIDAEMIA
     Route: 048
  8. TEVAPIRIN [Concomitant]
     Indication: MYOCARDIAL ISCHAEMIA
     Route: 048
  9. TEVAPIRIN [Concomitant]
     Indication: CORONARY ANGIOPLASTY
     Route: 048
  10. OMEPRADEX [Concomitant]
     Indication: DYSPEPSIA
     Route: 048
  11. HYDREA [Concomitant]
     Indication: POLYCYTHAEMIA VERA
     Route: 048
  12. PERMIXON [Concomitant]
     Indication: BENIGN PROSTATIC HYPERPLASIA
     Route: 048
     Dates: start: 20120731, end: 20121212
  13. TRITACE [Concomitant]
     Indication: HYPERTENSION
     Route: 048
     Dates: start: 20120828
  14. CLEXANE [Concomitant]
     Indication: THROMBOSIS
     Route: 048
     Dates: start: 20121025, end: 20121107
  15. CLEXANE [Concomitant]
     Indication: THROMBOSIS
     Route: 048
     Dates: start: 20121108, end: 20130414
  16. BROTIZOLAM [Concomitant]
     Indication: INSOMNIA
     Dosage: AS REQUIRED
     Route: 048
     Dates: start: 20121210, end: 20130310
  17. METAMIZOLE SODIUM [Concomitant]
     Indication: PAIN
     Route: 048
     Dates: start: 20121210, end: 20121210

REACTIONS (2)
  - Hypocalcaemia [Recovered/Resolved]
  - Hypomagnesaemia [Recovered/Resolved]
